FAERS Safety Report 13570401 (Version 3)
Quarter: 2017Q4

REPORT INFORMATION
  Report Type: Report from Study
  Country: AU (occurrence: AU)
  Receive Date: 20170522
  Receipt Date: 20171009
  Transmission Date: 20180320
  Serious: Yes (Hospitalization, Other)
  Sender: FDA-Public Use
  Company Number: AU-REGENERON PHARMACEUTICALS, INC.-2017-15968

PATIENT

DRUGS (1)
  1. EYLEA [Suspect]
     Active Substance: AFLIBERCEPT
     Indication: DIABETIC RETINAL OEDEMA
     Dosage: UNK, RIGHT EYE
     Route: 031
     Dates: start: 20170101, end: 201707

REACTIONS (4)
  - Cataract [Recovering/Resolving]
  - Ocular hyperaemia [Unknown]
  - Vitreous haemorrhage [Unknown]
  - Posterior lens capsulotomy [Unknown]

NARRATIVE: CASE EVENT DATE: 20170502
